FAERS Safety Report 4595705-6 (Version None)
Quarter: 2005Q1

REPORT INFORMATION
  Report Type: 
  Country: None (occurrence: None)
  Receive Date: 20050224
  Receipt Date: 20050211
  Transmission Date: 20050727
  Serious: Yes (Hospitalization)
  Sender: FDA-Public Use
  Company Number: 2005028713

PATIENT
  Age: 66 Year
  Sex: Female
  Weight: 63 kg

DRUGS (4)
  1. XANAX [Suspect]
     Indication: INSOMNIA
     Dosage: 1 MG (1 MG QD) ORAL
     Route: 048
  2. CLONAZEPAM [Suspect]
     Indication: DEPRESSION
     Dosage: ORAL
     Route: 048
     Dates: start: 20040101, end: 20050101
  3. CLONAZEPAM [Concomitant]
  4. LEVOTHYROXINE SODIUM [Concomitant]

REACTIONS (10)
  - ABDOMINAL PAIN [None]
  - CONDITION AGGRAVATED [None]
  - DEPRESSION [None]
  - DRUG INEFFECTIVE [None]
  - DRUG INTERACTION [None]
  - EMOTIONAL DISTRESS [None]
  - GASTRITIS [None]
  - NERVOUSNESS [None]
  - PANCREATIC CARCINOMA [None]
  - POST PROCEDURAL PAIN [None]
